FAERS Safety Report 6810823-7 (Version None)
Quarter: 2010Q2

REPORT INFORMATION
  Report Type: 
  Country: None (occurrence: None)
  Receive Date: 20100630
  Receipt Date: 20080702
  Transmission Date: 20101027
  Serious: No
  Sender: FDA-Public Use
  Company Number: US-PFIZER INC-2008055947

PATIENT
  Sex: Female
  Weight: 75.9 kg

DRUGS (7)
  1. ESTRING [Suspect]
     Indication: VAGINAL DISORDER
     Dates: start: 20040101
  2. PLENDIL [Concomitant]
  3. LIPITOR [Concomitant]
  4. SYNTHROID [Concomitant]
  5. XANAX [Concomitant]
  6. TRAZODONE HYDROCHLORIDE [Concomitant]
  7. ANTIHYPERTENSIVES [Concomitant]

REACTIONS (1)
  - VULVOVAGINAL MYCOTIC INFECTION [None]
